FAERS Safety Report 16313410 (Version 1)
Quarter: 2019Q2

REPORT INFORMATION
  Report Type: Spontaneous
  Country: US (occurrence: US)
  Receive Date: 20190409
  Receipt Date: 20190409
  Transmission Date: 20190711
  Serious: Yes (Hospitalization)
  Sender: FDA-Public Use
  Company Number: None

PATIENT
  Age: 60 Year
  Sex: Female

DRUGS (4)
  1. XELJANZ XR [Suspect]
     Active Substance: TOFACITINIB CITRATE
     Indication: RHEUMATOID ARTHRITIS
     Route: 048
     Dates: start: 20180814
  2. FOLIC ACID. [Concomitant]
     Active Substance: FOLIC ACID
  3. DOXOPIN HCL [Concomitant]
  4. LEFLUNOMIDE. [Concomitant]
     Active Substance: LEFLUNOMIDE

REACTIONS (5)
  - Diarrhoea [None]
  - Lung disorder [None]
  - Influenza [None]
  - Therapy cessation [None]
  - Dyspnoea [None]

NARRATIVE: CASE EVENT DATE: 20190312
